FAERS Safety Report 16489587 (Version 1)
Quarter: 2019Q2

REPORT INFORMATION
  Report Type: Spontaneous
  Country: US (occurrence: US)
  Receive Date: 20190628
  Receipt Date: 20190628
  Transmission Date: 20190711
  Serious: No
  Sender: FDA-Public Use
  Company Number: US-ACCORD-069260

PATIENT
  Age: 89 Year
  Sex: Female
  Weight: 68.04 kg

DRUGS (1)
  1. CLONAZEPAM. [Suspect]
     Active Substance: CLONAZEPAM
     Indication: ANXIETY
     Dosage: REDUCED TO 0.5MG / 1/2 TABLET ONE IN THE MORNING AND ONE AT BED TIME.
     Route: 048

REACTIONS (2)
  - Nightmare [Unknown]
  - Wrong technique in product usage process [Unknown]
